FAERS Safety Report 5531227-3 (Version None)
Quarter: 2007Q4

REPORT INFORMATION
  Report Type: 
  Country: None (occurrence: None)
  Receive Date: 20071130
  Receipt Date: 20071120
  Transmission Date: 20080405
  Serious: Yes (Hospitalization, Other)
  Sender: FDA-Public Use
  Company Number: JP-ABBOTT-07P-087-0425278-00

PATIENT
  Sex: Male

DRUGS (1)
  1. CEFZON [Suspect]
     Indication: SKIN INFECTION
     Route: 048
     Dates: start: 20071107, end: 20071107

REACTIONS (2)
  - RASH [None]
  - SWELLING [None]
